FAERS Safety Report 25323738 (Version 4)
Quarter: 2025Q2

REPORT INFORMATION
  Report Type: Spontaneous
  Country: US (occurrence: US)
  Receive Date: 20250516
  Receipt Date: 20250630
  Transmission Date: 20250716
  Serious: No
  Sender: PFIZER
  Company Number: US-PFIZER INC-202400077697

PATIENT
  Age: 16 Year
  Sex: Male
  Weight: 49.2 kg

DRUGS (3)
  1. GENOTROPIN [Suspect]
     Active Substance: SOMATROPIN
     Indication: Hypopituitarism
     Dosage: 2.5 MG/DAY 6 DAYS/WEEK (INJECT 2.5 MG (ALTERNATE 2.4/2.6) 6X/WK)
     Route: 058
     Dates: start: 20240402, end: 20250604
  2. GENOTROPIN [Suspect]
     Active Substance: SOMATROPIN
     Indication: Growth hormone deficiency
     Route: 058
     Dates: start: 20240908
  3. GENOTROPIN [Suspect]
     Active Substance: SOMATROPIN
     Dosage: DAILY DOSE 3 MG/DAY 6 DAYS/WEEK
     Route: 058

REACTIONS (3)
  - Device defective [Unknown]
  - Device information output issue [Unknown]
  - Drug dose omission by device [Unknown]

NARRATIVE: CASE EVENT DATE: 20250325
